FAERS Safety Report 6012400-7 (Version None)
Quarter: 2008Q4

REPORT INFORMATION
  Report Type: 
  Country: None (occurrence: None)
  Receive Date: 20081218
  Receipt Date: 20081007
  Transmission Date: 20090506
  Serious: No
  Sender: FDA-Public Use
  Company Number: US-ASTRAZENECA-2008UW21831

PATIENT
  Age: 75 Year
  Sex: Female
  Weight: 56.7 kg

DRUGS (3)
  1. SYMBICORT [Suspect]
     Indication: ASTHMA
     Dosage: 80/4.5
     Route: 055
  2. DIOVAN [Concomitant]
  3. BACTRIM [Concomitant]

REACTIONS (1)
  - OCULAR HYPERAEMIA [None]
